FAERS Safety Report 14627920 (Version 3)
Quarter: 2020Q2

REPORT INFORMATION
  Report Type: Spontaneous
  Country: JP (occurrence: JP)
  Receive Date: 20180312
  Receipt Date: 20200422
  Transmission Date: 20200713
  Serious: Yes (Other)
  Sender: FDA-Public Use
  Company Number: JP-BAUSCH-BL-2018-006445

PATIENT
  Age: 63 Year
  Sex: Female

DRUGS (8)
  1. HIRUDOID [Concomitant]
     Active Substance: GLYCOSAMINOGLYCANS
     Indication: PRODUCT USED FOR UNKNOWN INDICATION
     Dates: start: 20180418
  2. LUMICEF SUBCUTANEOUS INJECTION SYRINGE 210 (BRODALUMAB) [Suspect]
     Active Substance: BRODALUMAB
     Indication: PSORIASIS
     Route: 058
     Dates: start: 20170908
  3. MARDUOX [Concomitant]
     Active Substance: BETAMETHASONE BUTYRATE PROPIONATE\MAXACALCITOL
     Indication: PSORIASIS
     Route: 061
     Dates: start: 20170830
  4. ANTEBATE [Concomitant]
     Active Substance: BETAMETHASONE DIPROPIONATE
     Indication: PSORIASIS
     Dosage: EXCEPT LOTION FOR EYE
     Route: 061
     Dates: start: 20151125
  5. HUMIRA [Concomitant]
     Active Substance: ADALIMUMAB
     Indication: PSORIASIS
     Dosage: GENETICAL RECOMBINATION
     Route: 058
     Dates: start: 20150610, end: 20170426
  6. LUMICEF SUBCUTANEOUS INJECTION SYRINGE 210 (BRODALUMAB) [Suspect]
     Active Substance: BRODALUMAB
     Route: 058
     Dates: start: 20180314, end: 20200227
  7. COSENTYX [Concomitant]
     Active Substance: SECUKINUMAB
     Indication: PSORIASIS
     Dosage: GENETICAL RECOMBINATION
     Route: 058
     Dates: start: 20170508, end: 20170830
  8. COMCLO [Concomitant]
     Active Substance: CLOBETASOL PROPIONATE
     Indication: PRODUCT USED FOR UNKNOWN INDICATION
     Dates: start: 20180704

REACTIONS (3)
  - Subcutaneous abscess [Recovered/Resolved]
  - Cell marker increased [Not Recovered/Not Resolved]
  - Cellulitis [Recovered/Resolved]

NARRATIVE: CASE EVENT DATE: 20180219
